FAERS Safety Report 7309148-5 (Version None)
Quarter: 2011Q1

REPORT INFORMATION
  Report Type: 
  Country: None (occurrence: None)
  Receive Date: 20110223
  Receipt Date: 20110214
  Transmission Date: 20110831
  Serious: Yes (Other)
  Sender: FDA-Public Use
  Company Number: US-PURDUE-USA-2010-0056243

PATIENT
  Sex: Male
  Weight: 90.703 kg

DRUGS (2)
  1. OXYCONTIN [Suspect]
     Indication: BACK PAIN
     Dosage: 80 MG, TID
     Dates: start: 20001211, end: 20050606
  2. OXYCONTIN [Suspect]
     Indication: PAIN IN EXTREMITY
     Dosage: UNK
     Dates: start: 20001211, end: 20050602

REACTIONS (4)
  - SUICIDAL IDEATION [None]
  - DEPRESSION [None]
  - MIGRAINE [None]
  - DRUG WITHDRAWAL SYNDROME [None]
